FAERS Safety Report 12204820 (Version 2)
Quarter: 2016Q1

REPORT INFORMATION
  Report Type: Spontaneous
  Country: US (occurrence: US)
  Receive Date: 20160323
  Receipt Date: 20160330
  Transmission Date: 20160526
  Serious: Yes (Other)
  Sender: FDA-Public Use
  Company Number: US-PFIZER INC-2016169651

PATIENT
  Age: 62 Year
  Sex: Male
  Weight: 93.89 kg

DRUGS (4)
  1. CHANTIX [Suspect]
     Active Substance: VARENICLINE TARTRATE
     Dosage: 1 MG, 2X/DAY
  2. NEXIUM [Concomitant]
     Active Substance: ESOMEPRAZOLE MAGNESIUM
     Dosage: UNK
  3. CHANTIX [Suspect]
     Active Substance: VARENICLINE TARTRATE
     Indication: SMOKING CESSATION THERAPY
     Dosage: UNK
     Dates: start: 20151208
  4. CRESTOR [Concomitant]
     Active Substance: ROSUVASTATIN CALCIUM
     Dosage: UNK

REACTIONS (15)
  - Laryngitis [Unknown]
  - Aphonia [Unknown]
  - Head titubation [Unknown]
  - Agitation [Unknown]
  - Swollen tongue [Unknown]
  - Snoring [Unknown]
  - Heart rate decreased [Unknown]
  - Blood pressure increased [Unknown]
  - Dysphonia [Unknown]
  - Irritability [Unknown]
  - Tongue disorder [Unknown]
  - Lethargy [Unknown]
  - Somnolence [Unknown]
  - Vocal cord paralysis [Unknown]
  - Feeling abnormal [Unknown]

NARRATIVE: CASE EVENT DATE: 20160116
